FAERS Safety Report 5828508-2 (Version None)
Quarter: 2008Q3

REPORT INFORMATION
  Report Type: 
  Country: None (occurrence: None)
  Receive Date: 20080729
  Receipt Date: 20080729
  Transmission Date: 20090109
  Serious: Yes (Other)
  Sender: FDA-Public Use
  Company Number: None

PATIENT
  Age: 68 Year
  Sex: Female
  Weight: 63.5036 kg

DRUGS (2)
  1. BONIVA [Suspect]
     Indication: OSTEOPOROSIS
     Dosage: 150 MG MONTHLY PO
     Route: 048
     Dates: start: 20060825, end: 20080725
  2. ACTONEL [Suspect]
     Dosage: 150 MG MONTHLY PO
     Route: 048

REACTIONS (1)
  - EPISCLERITIS [None]
